FAERS Safety Report 7402680-5 (Version None)
Quarter: 2011Q1

REPORT INFORMATION
  Report Type: 
  Country: None (occurrence: None)
  Receive Date: 20110331
  Receipt Date: 20110322
  Transmission Date: 20110831
  Serious: Yes (Other)
  Sender: FDA-Public Use
  Company Number: DSU-2011-02101

PATIENT
  Sex: Female
  Weight: 61.2356 kg

DRUGS (12)
  1. PROGIL (MODAFINIL) (200 MILLIGRAM, TABLET)(MODAFINIL) [Suspect]
     Indication: DISTURBANCE IN ATTENTION
     Dosage: , PER ORAL, , PER ORAL, 100 MG (100 MG,1 IN 1 D),PER ORAL
     Route: 048
     Dates: start: 20110101, end: 20110101
  2. TRILIPIX (CHOLINE FENOFIBRATE) (CHOLINE FENOFIBRATE) [Concomitant]
  3. VITAMIN D (ERGOCALCIFEROL) (ERGOCALCIFEROL) [Concomitant]
  4. ASPIRIN [Concomitant]
  5. FISH OIL (FISH OIL) (4000 MILLIGRAM) (FISH OIL) [Concomitant]
  6. TRICOR (ADENOSINE) (ADENOSINE) [Concomitant]
  7. MIDRIN (PARACETAMOL, DICHLORALPHENAZONE, ISOMETHEPTENE)(PARACETAMOL, D [Concomitant]
  8. AMBIEN [Concomitant]
  9. VIVELLE DOT (ESTRADIOL)(ESTRADIOL) [Concomitant]
  10. CYMBALTA (DULOXETINE HYDROCHLORIDE)(DULOXE HYDROCHLORIDE) [Concomitant]
  11. WELCHOL [Suspect]
     Indication: HYPERCHOLESTEROLAEMIA
     Dosage: 3750 MG (1875 MG, BID), PER ORAL
     Route: 048
  12. MAGNESIUM (MAGNESIUM) (250 MILLIGRAM)(MAGNESIUM) [Concomitant]

REACTIONS (4)
  - DISTURBANCE IN ATTENTION [None]
  - DRUG INTERACTION [None]
  - PANCREATITIS ACUTE [None]
  - POISONING [None]
